FAERS Safety Report 10276450 (Version 1)
Quarter: 2014Q3

REPORT INFORMATION
  Report Type: Spontaneous
  Country: US (occurrence: US)
  Receive Date: 20140703
  Receipt Date: 20140703
  Transmission Date: 20150326
  Serious: Yes (Other)
  Sender: FDA-Public Use
  Company Number: US-BAYER-2014-100261

PATIENT
  Age: 36 Year
  Sex: Female

DRUGS (1)
  1. MIRENA [Suspect]
     Active Substance: LEVONORGESTREL
     Indication: CONTRACEPTION
     Dosage: 20 MCG/24HR, CONT
     Route: 015
     Dates: start: 2005

REACTIONS (4)
  - Embedded device [None]
  - Vaginal haemorrhage [None]
  - Amenorrhoea [Not Recovered/Not Resolved]
  - Device misuse [None]

NARRATIVE: CASE EVENT DATE: 2005
